FAERS Safety Report 7672327 (Version 5)
Quarter: 2013Q1

REPORT INFORMATION
  Report Type: Spontaneous
  Country: US (occurrence: US)
  Receive Date: 20101117
  Receipt Date: 20130204
  Transmission Date: 20140127
  Serious: Yes (Other)
  Sender: FDA-Public Use
  Company Number: US-BAYER-201040916NA

PATIENT
  Age: 47 Year
  Sex: Female
  Weight: 65.76 kg

DRUGS (6)
  1. YASMIN [Suspect]
     Indication: CONTRACEPTION
     Dosage: UNK UNK, UNK
     Route: 048
     Dates: start: 200504, end: 200808
  2. YASMIN [Suspect]
     Indication: ACNE
  3. OCELLA [Suspect]
     Indication: CONTRACEPTION
     Dosage: UNK UNK, UNK
     Route: 048
     Dates: start: 200808, end: 200908
  4. OCELLA [Suspect]
     Indication: ACNE
  5. YAZ [Suspect]
  6. PHENTERMINE [Concomitant]

REACTIONS (4)
  - Haemorrhagic stroke [None]
  - Pain [None]
  - Monoplegia [None]
  - Muscular weakness [None]
